FAERS Safety Report 7070036-3 (Version None)
Quarter: 2010Q4

REPORT INFORMATION
  Report Type: 
  Country: None (occurrence: None)
  Receive Date: 20101028
  Receipt Date: 20100811
  Transmission Date: 20110411
  Serious: No
  Sender: FDA-Public Use
  Company Number: US-WYE-H17008610

PATIENT
  Sex: Male
  Weight: 79.45 kg

DRUGS (6)
  1. PANTOPRAZOLE [Suspect]
     Indication: GASTROOESOPHAGEAL REFLUX DISEASE
     Route: 048
     Dates: start: 20100811
  2. SIMVASTATIN [Concomitant]
  3. LEXAPRO [Concomitant]
  4. BUSPIRONE HCL [Concomitant]
  5. VITAMINS [Concomitant]
  6. LORAZEPAM [Concomitant]

REACTIONS (3)
  - DRUG INEFFECTIVE [None]
  - FATIGUE [None]
  - PRODUCT QUALITY ISSUE [None]
